FAERS Safety Report 24343508 (Version 1)
Quarter: 2024Q3

REPORT INFORMATION
  Report Type: Spontaneous
  Country: CN (occurrence: CN)
  Receive Date: 20240920
  Receipt Date: 20240920
  Transmission Date: 20241017
  Serious: Yes (Other)
  Sender: PFIZER
  Company Number: CN-PFIZER INC-PV202400122381

PATIENT
  Age: 53 Year
  Sex: Male
  Weight: 65 kg

DRUGS (3)
  1. CYTARABINE [Suspect]
     Active Substance: CYTARABINE
     Indication: Acute lymphocytic leukaemia
     Dosage: 1 G, 2X/DAY VIA PUMP INJECTION/D1
     Dates: start: 20240621, end: 20240623
  2. CYTARABINE [Suspect]
     Active Substance: CYTARABINE
     Dosage: 0.500000 G, 2X/DAY VIA PUMP INJECTION/D2-3
     Dates: start: 20240622, end: 20240623
  3. SODIUM CHLORIDE [Concomitant]
     Active Substance: SODIUM CHLORIDE
     Indication: Vehicle solution use
     Dosage: 250.000 ML, 2X/DAY
     Dates: start: 20240621, end: 20240623

REACTIONS (4)
  - Myelosuppression [Recovering/Resolving]
  - Pyrexia [Recovering/Resolving]
  - Haemorrhage subcutaneous [Recovering/Resolving]
  - Anaemia [Recovering/Resolving]

NARRATIVE: CASE EVENT DATE: 20240706
